FAERS Safety Report 6338738-1 (Version None)
Quarter: 2009Q3

REPORT INFORMATION
  Report Type: 
  Country: None (occurrence: None)
  Receive Date: 20090903
  Receipt Date: 20090828
  Transmission Date: 20100115
  Serious: Yes (Disabling)
  Sender: FDA-Public Use
  Company Number: AU-WYE-G04254209

PATIENT
  Sex: Female

DRUGS (1)
  1. PRISTIQ [Suspect]
     Dosage: 50MG D STARTED ABOUT 2 MONTHS AGO THEN 100MG D A WEEK AGO THEN DECREASED TO 50MG D ABOUT 2 DAYS AGO

REACTIONS (1)
  - MIGRAINE [None]
